FAERS Safety Report 5400945-X (Version None)
Quarter: 2007Q3

REPORT INFORMATION
  Report Type: 
  Country: None (occurrence: None)
  Receive Date: 20070730
  Receipt Date: 20070723
  Transmission Date: 20080115
  Serious: Yes (Hospitalization)
  Sender: FDA-Public Use
  Company Number: JP-ROXANE LABORATORIES, INC-2007-BP-18149RO

PATIENT
  Age: 27 Year
  Sex: Male

DRUGS (7)
  1. CHLORPROMAZINE [Suspect]
     Dosage: 1400 MG X 1 DOSE
     Route: 048
  2. RISPERIDONE [Suspect]
     Dosage: 164 MG X 1 DOSE
     Route: 048
  3. ZOTEPINE [Suspect]
     Dosage: 4350 MG X 1 DOSE
     Route: 048
  4. VALPROIC ACID [Suspect]
     Dosage: 6400 MG X 1 DOSE
     Route: 048
  5. VETANARCOL CHLORIDE [Suspect]
     Dosage: 1050 MG X 1 DOSE
     Route: 048
  6. BROTIZOLAM [Suspect]
     Dosage: 7 MG X 1 DOSE
     Route: 048
  7. FLUNITRAZEPAM [Suspect]
     Dosage: 56 MG X 1 DOSE
     Route: 048

REACTIONS (7)
  - BLOOD CREATINE PHOSPHOKINASE INCREASED [None]
  - DEPRESSED LEVEL OF CONSCIOUSNESS [None]
  - DRUG TOXICITY [None]
  - HYPOKALAEMIA [None]
  - INTENTIONAL OVERDOSE [None]
  - METABOLIC ACIDOSIS [None]
  - SHOCK [None]
